FAERS Safety Report 9523766 (Version 1)
Quarter: 2013Q3

REPORT INFORMATION
  Report Type: Report from Study
  Country: US (occurrence: US)
  Receive Date: 20130915
  Receipt Date: 20130915
  Transmission Date: 20140515
  Serious: Yes (Hospitalization)
  Sender: FDA-Public Use
  Company Number: PHHO2012US002117

PATIENT
  Age: 64 Year
  Sex: Male
  Weight: 113 kg

DRUGS (14)
  1. MYFORTIC [Suspect]
     Indication: RENAL TRANSPLANT
     Dosage: 720 MG, BID
     Route: 048
     Dates: start: 20090720
  2. ASA [Concomitant]
     Dosage: 81 MG, QD
     Dates: start: 20090728
  3. BACTRIM [Concomitant]
     Dates: start: 20090728
  4. LOPRESSOR [Concomitant]
     Dosage: 50 MG, BID
     Dates: start: 20090825
  5. MVI [Concomitant]
     Dates: start: 20090717
  6. PRILOSEC [Concomitant]
     Dosage: 40 MG, QD
     Dates: start: 20080619
  7. DELTASONE [Concomitant]
     Dosage: 5 MG, QD
     Dates: start: 20100322
  8. ZOLOFT [Concomitant]
     Dosage: 100 MG, QD
     Dates: start: 20100322
  9. ZOCOR [Concomitant]
     Dosage: 10 MG, QD
     Dates: start: 20090717
  10. COZAAR [Concomitant]
     Dosage: 50 MG, BID
     Dates: start: 20091020
  11. PROGRAF [Concomitant]
     Dosage: 6 MG, BID
     Dates: start: 20091229
  12. WARFARIN [Concomitant]
     Dosage: 5 MG, QD
     Dates: start: 20090728, end: 20101014
  13. MAGNESIUM [Concomitant]
     Dates: start: 20090825
  14. MYCELEX [Concomitant]
     Dosage: 40 UNK, DAILY
     Dates: start: 20090717, end: 20090805

REACTIONS (19)
  - Post-tussive vomiting [Unknown]
  - Abdominal discomfort [Unknown]
  - Night sweats [Unknown]
  - Dyspnoea [Unknown]
  - Depression [Recovered/Resolved]
  - Myalgia [Unknown]
  - Pyrexia [Unknown]
  - Cough [Unknown]
  - Nausea [Unknown]
  - Atrial fibrillation [Recovered/Resolved]
  - Pneumonia [Recovered/Resolved]
  - Focal segmental glomerulosclerosis [Recovered/Resolved]
  - Hypertension [Recovered/Resolved]
  - Hyperlipidaemia [Recovered/Resolved]
  - Concomitant disease progression [Recovered/Resolved]
  - Urinary tract infection [Recovered/Resolved]
  - Urinary retention [Recovered/Resolved]
  - Benign prostatic hyperplasia [Recovered/Resolved]
  - Renal failure chronic [Recovered/Resolved]
